FAERS Safety Report 17315121 (Version 2)
Quarter: 2020Q1

REPORT INFORMATION
  Report Type: Report from Study
  Country: EG (occurrence: EG)
  Receive Date: 20200124
  Receipt Date: 20200130
  Transmission Date: 20200409
  Serious: Yes (Death)
  Sender: FDA-Public Use
  Company Number: NVSC2020EG016548

PATIENT
  Age: 64 Year
  Sex: Male

DRUGS (2)
  1. EXAMIDE [Concomitant]
     Indication: PRODUCT USED FOR UNKNOWN INDICATION
     Dosage: 1 DF, QD
     Route: 065
  2. ENTRESTO [Suspect]
     Active Substance: SACUBITRIL\VALSARTAN
     Indication: CARDIAC FAILURE
     Dosage: 0.5 DF, BID
     Route: 048
     Dates: start: 201904

REACTIONS (3)
  - Wrong technique in product usage process [Unknown]
  - Prescribed underdose [Unknown]
  - Hypotension [Fatal]

NARRATIVE: CASE EVENT DATE: 201904
